FAERS Safety Report 13534587 (Version 2)
Quarter: 2017Q2

REPORT INFORMATION
  Report Type: Report from Study
  Country: US (occurrence: US)
  Receive Date: 20170511
  Receipt Date: 20170516
  Transmission Date: 20170830
  Serious: No
  Sender: FDA-Public Use
  Company Number: US-PFIZER INC-2017202128

PATIENT
  Age: 57 Year
  Sex: Female

DRUGS (1)
  1. IBRANCE [Suspect]
     Active Substance: PALBOCICLIB
     Indication: BREAST CANCER
     Dosage: 125 MG, CYCLIC (DAILY; 3 WEEKS ON/ 1 WEEK OFF)
     Route: 048
     Dates: start: 20170502

REACTIONS (8)
  - Arthralgia [Unknown]
  - Initial insomnia [Unknown]
  - Fatigue [Unknown]
  - Sciatica [Unknown]
  - Glossodynia [Unknown]
  - Condition aggravated [Unknown]
  - Night sweats [Unknown]
  - Chills [Unknown]
